FAERS Safety Report 5675461-0 (Version None)
Quarter: 2008Q2

REPORT INFORMATION
  Report Type: 
  Country: None (occurrence: None)
  Receive Date: 20080311
  Receipt Date: 20070131
  Transmission Date: 20081010
  Serious: Yes (Other)
  Sender: FDA-Public Use
  Company Number: PHEH2006US15114

PATIENT
  Sex: Male
  Weight: 104.8 kg

DRUGS (7)
  1. TRILEPTAL(OXCARBAZEPEIN) TABLET [Suspect]
     Indication: AFFECTIVE DISORDER
     Dosage: 300 MG, BID
     Dates: start: 20061001
  2. EFFEXOR-XR (VENLAFAZINE HYDROCHLORIDE) [Concomitant]
  3. GABAPENTIN [Concomitant]
  4. LISINOPRIL [Concomitant]
  5. ATENOLOL [Concomitant]
  6. METFORMIN HCL [Concomitant]
  7. NASONEX [Concomitant]

REACTIONS (8)
  - DIZZINESS [None]
  - NAUSEA [None]
  - ORAL HERPES [None]
  - PRURITUS [None]
  - PYREXIA [None]
  - RASH MACULO-PAPULAR [None]
  - SCAB [None]
  - SKIN EXFOLIATION [None]
